FAERS Safety Report 10873464 (Version 2)
Quarter: 2015Q4

REPORT INFORMATION
  Report Type: Report from Study
  Country: IT (occurrence: IT)
  Receive Date: 20150227
  Receipt Date: 20151201
  Transmission Date: 20160304
  Serious: No
  Sender: FDA-Public Use
  Company Number: IT-ABBVIE-15P-083-1351550-00

PATIENT
  Age: 66 Year
  Sex: Male
  Weight: 83 kg

DRUGS (2)
  1. DUODOPA [Suspect]
     Active Substance: CARBIDOPA\LEVODOPA
     Route: 050
  2. DUODOPA [Suspect]
     Active Substance: CARBIDOPA\LEVODOPA
     Indication: PARKINSON^S DISEASE
     Dosage: MD 9,5 (+3);CR 4,5;ED 2,5
     Route: 050
     Dates: start: 20140217

REACTIONS (1)
  - Granuloma [Not Recovered/Not Resolved]

NARRATIVE: CASE EVENT DATE: 201412
